FAERS Safety Report 9690634 (Version 1)
Quarter: 2013Q4

REPORT INFORMATION
  Report Type: Spontaneous
  Country: US (occurrence: None)
  Receive Date: 20131114
  Receipt Date: 20131114
  Transmission Date: 20140711
  Serious: Yes (Other)
  Sender: FDA-Public Use
  Company Number: None

PATIENT
  Age: 55 Year
  Sex: Female
  Weight: 61.24 kg

DRUGS (2)
  1. ZOMETA [Suspect]
     Indication: BREAST CANCER
     Dates: start: 20130718, end: 20130819
  2. XGEVA [Suspect]
     Dates: start: 20130515, end: 20130905

REACTIONS (3)
  - Pharyngeal hypoaesthesia [None]
  - Dyspnoea [None]
  - Dysphagia [None]
